FAERS Safety Report 5655753-1 (Version None)
Quarter: 2008Q1

REPORT INFORMATION
  Report Type: 
  Country: None (occurrence: None)
  Receive Date: 20080307
  Receipt Date: 20080227
  Transmission Date: 20080703
  Serious: Yes (Other)
  Sender: FDA-Public Use
  Company Number: JP-PFIZER INC-2008015275

PATIENT
  Sex: Male

DRUGS (2)
  1. SOLANAX [Suspect]
     Indication: INSOMNIA
     Route: 048
     Dates: start: 20080201, end: 20080207
  2. DOGMATYL [Suspect]
     Indication: DEPRESSION
     Route: 048
     Dates: start: 20080201, end: 20080207

REACTIONS (1)
  - SWELLING FACE [None]
